FAERS Safety Report 8416189-3 (Version None)
Quarter: 2012Q2

REPORT INFORMATION
  Report Type: 
  Country: None (occurrence: None)
  Receive Date: 20120606
  Receipt Date: 20120322
  Transmission Date: 20120825
  Serious: Yes (Hospitalization)
  Sender: FDA-Public Use
  Company Number: US-ROCHE-1075292

PATIENT
  Sex: Female

DRUGS (3)
  1. PEGASYS [Suspect]
     Indication: HEPATITIS C
     Route: 058
     Dates: start: 20120127
  2. RIBAVIRIN [Suspect]
     Indication: HEPATITIS C
     Dosage: DIVIDED DOSES
     Route: 048
     Dates: start: 20120127
  3. BOCEPREVIR [Suspect]
     Indication: PRODUCT USED FOR UNKNOWN INDICATION
     Route: 048

REACTIONS (9)
  - MEMORY IMPAIRMENT [None]
  - VOMITING [None]
  - RED BLOOD CELL COUNT DECREASED [None]
  - WHITE BLOOD CELL COUNT DECREASED [None]
  - PLATELET COUNT DECREASED [None]
  - TREMOR [None]
  - DYSGEUSIA [None]
  - NAUSEA [None]
  - MALNUTRITION [None]
